FAERS Safety Report 5331492-1 (Version None)
Quarter: 2007Q2

REPORT INFORMATION
  Report Type: 
  Country: None (occurrence: None)
  Receive Date: 20070522
  Receipt Date: 20070511
  Transmission Date: 20071010
  Serious: Yes (Hospitalization)
  Sender: FDA-Public Use
  Company Number: US-ELI_LILLY_AND_COMPANY-US200705003131

PATIENT
  Age: 83 Year
  Sex: Male

DRUGS (3)
  1. HUMALOG [Suspect]
     Dosage: 15 U, EACH MORNING
     Dates: start: 19920101
  2. HUMALOG [Suspect]
     Dosage: 10 U, OTHER
     Dates: start: 19920101
  3. CARBIDOPA [Concomitant]
     Dosage: UNK, UNK

REACTIONS (1)
  - HALLUCINATION, VISUAL [None]
